FAERS Safety Report 10155378 (Version 2)
Quarter: 2014Q2

REPORT INFORMATION
  Report Type: Spontaneous
  Country: GB (occurrence: GB)
  Receive Date: 20140506
  Receipt Date: 20140506
  Transmission Date: 20141212
  Serious: Yes (Other)
  Sender: FDA-Public Use
  Company Number: GB-009507513-1307GBR003406

PATIENT
  Age: 24 Year
  Sex: Female

DRUGS (1)
  1. NEXPLANON [Suspect]
     Indication: CONTRACEPTION
     Dosage: 3 YEARLY
     Route: 059
     Dates: start: 20121002, end: 2012

REACTIONS (7)
  - Skin disorder [Recovered/Resolved]
  - Implant site infection [Recovered/Resolved]
  - Reaction to drug excipients [Recovered/Resolved]
  - Skin fissures [Unknown]
  - Implant site swelling [Unknown]
  - Incorrect route of drug administration [Unknown]
  - Device expulsion [Recovered/Resolved]
